FAERS Safety Report 7594107-8 (Version None)
Quarter: 2011Q3

REPORT INFORMATION
  Report Type: 
  Country: None (occurrence: None)
  Receive Date: 20110706
  Receipt Date: 20110629
  Transmission Date: 20111222
  Serious: Yes (Other)
  Sender: FDA-Public Use
  Company Number: FR-ABBOTT-11P-056-0835839-00

PATIENT
  Sex: Male

DRUGS (6)
  1. NORVIR [Suspect]
     Indication: HIV INFECTION
     Route: 048
     Dates: start: 20050207, end: 20101227
  2. TRUVADA [Concomitant]
     Indication: HIV INFECTION
     Dosage: 200/245 MG QD
     Route: 048
     Dates: start: 20100426
  3. TRAMADOL HCL [Concomitant]
     Indication: PRODUCT USED FOR UNKNOWN INDICATION
     Route: 048
  4. SPIRIVA [Concomitant]
     Indication: PRODUCT USED FOR UNKNOWN INDICATION
     Route: 055
  5. REYATAZ [Suspect]
     Indication: HIV INFECTION
     Route: 048
     Dates: start: 20100426, end: 20110227
  6. QVAR AUTOHALER [Concomitant]
     Indication: PRODUCT USED FOR UNKNOWN INDICATION
     Route: 055

REACTIONS (5)
  - HEPATIC NEOPLASM MALIGNANT [None]
  - ENCEPHALITIS CYTOMEGALOVIRUS [None]
  - HEPATITIS B [None]
  - HYPERBILIRUBINAEMIA [None]
  - JAUNDICE [None]
